FAERS Safety Report 9268815 (Version 1)
Quarter: 2013Q2

REPORT INFORMATION
  Report Type: Spontaneous
  Country: DE (occurrence: DE)
  Receive Date: 20130502
  Receipt Date: 20130502
  Transmission Date: 20140414
  Serious: Yes (Death, Other)
  Sender: FDA-Public Use
  Company Number: PHHY2013DE031719

PATIENT
  Sex: 0

DRUGS (2)
  1. AFINITOR [Suspect]
     Indication: BREAST CANCER
     Dosage: 2.5 MG, BID
     Route: 048
  2. PACLITAXEL [Suspect]
     Indication: BREAST CANCER
     Dosage: 80 MG/M2, UNK

REACTIONS (4)
  - Death [Fatal]
  - Renal failure [Unknown]
  - Pneumonia [Unknown]
  - Mucosal inflammation [Unknown]
